FAERS Safety Report 4325003-7 (Version None)
Quarter: 2004Q1

REPORT INFORMATION
  Report Type: 
  Country: None (occurrence: None)
  Receive Date: 20040322
  Receipt Date: 20040305
  Transmission Date: 20041129
  Serious: Yes (Hospitalization)
  Sender: FDA-Public Use
  Company Number: DSA_24086_2004

PATIENT
  Age: 73 Year
  Sex: Female

DRUGS (6)
  1. DILTIAZEM HYDROCHLORIDE [Suspect]
     Dosage: 200 MG Q DAY PO
     Route: 048
     Dates: start: 20010101
  2. KARDEGIC [Suspect]
     Dates: start: 19991101
  3. HYPERIUM [Suspect]
     Dosage: 2 MG Q DAY PO
     Route: 048
     Dates: start: 20010101
  4. NITRIDERM TTS [Suspect]
     Dosage: 10 MG Q DAY TD
     Route: 062
     Dates: start: 20010101
  5. LASIX [Suspect]
     Dosage: 20 MG Q DAY PO
     Route: 048
     Dates: start: 19990101
  6. FUROSEMIDE [Concomitant]

REACTIONS (1)
  - RENAL FAILURE [None]
